FAERS Safety Report 5184203-7 (Version None)
Quarter: 2006Q4

REPORT INFORMATION
  Report Type: 
  Country: None (occurrence: None)
  Receive Date: 20061220
  Receipt Date: 20060217
  Transmission Date: 20070319
  Serious: No
  Sender: FDA-Public Use
  Company Number: US-GLAXOSMITHKLINE-A0594075A

PATIENT
  Age: 52 Year
  Sex: Male

DRUGS (2)
  1. NICODERM CQ [Suspect]
  2. SLEEP AID [Concomitant]

REACTIONS (3)
  - ANOREXIA [None]
  - FEELING ABNORMAL [None]
  - RETCHING [None]
